FAERS Safety Report 5165303-4 (Version None)
Quarter: 2006Q4

REPORT INFORMATION
  Report Type: 
  Country: None (occurrence: None)
  Receive Date: 20061124
  Receipt Date: 20061114
  Transmission Date: 20070319
  Serious: Yes (Other)
  Sender: FDA-Public Use
  Company Number: 2006143036

PATIENT
  Age: 73 Year
  Sex: Male

DRUGS (10)
  1. LYRICA [Suspect]
     Indication: NEURALGIA
     Dosage: 75 MG (75 MG, 1 IN 1 D) ORAL
     Route: 048
     Dates: start: 20061001
  2. SERETIDE (FLUTICASONE PROPIONATE, SALMETEROL XINAFOATE) [Concomitant]
  3. TAMSULOSIN HCL [Concomitant]
  4. GLYBURIDE [Concomitant]
  5. CARVEDILOL [Concomitant]
  6. BACLOFEN [Concomitant]
  7. DIGOXIN [Concomitant]
  8. SINTROM [Concomitant]
  9. VASTAREL (TRIMETAZIDINE HYDROCHLORIDE) [Concomitant]
  10. LONARID (AMOBARTIBAL, CAFFEINE, CODEINE PHOSPHATE, OCTIBENZONIUM BROMI [Concomitant]

REACTIONS (3)
  - FATIGUE [None]
  - GAIT DISTURBANCE [None]
  - OEDEMA PERIPHERAL [None]
